FAERS Safety Report 16112274 (Version 1)
Quarter: 2019Q1

REPORT INFORMATION
  Report Type: Spontaneous
  Country: DE (occurrence: DE)
  Receive Date: 20190325
  Receipt Date: 20190325
  Transmission Date: 20190418
  Serious: Yes (Hospitalization)
  Sender: FDA-Public Use
  Company Number: DE-BAYER-2019-056733

PATIENT
  Age: 67 Year
  Sex: Male
  Weight: 104 kg

DRUGS (2)
  1. IBUPROFEN. [Concomitant]
     Active Substance: IBUPROFEN
     Dosage: UNK UNK, ONCE
  2. ULTRAVIST [Suspect]
     Active Substance: IOPROMIDE
     Indication: COMPUTERISED TOMOGRAM THORAX
     Dosage: 100 ML, ONCE
     Route: 042
     Dates: start: 20190321

REACTIONS (2)
  - Seizure [Unknown]
  - Cardiovascular insufficiency [Unknown]

NARRATIVE: CASE EVENT DATE: 20190321
